FAERS Safety Report 18786156 (Version 2)
Quarter: 2021Q1

REPORT INFORMATION
  Report Type: Spontaneous
  Country: FR (occurrence: FR)
  Receive Date: 20210126
  Receipt Date: 20210206
  Transmission Date: 20210419
  Serious: Yes (Life-Threatening, Hospitalization, Other)
  Sender: FDA-Public Use
  Company Number: FR-LUPIN PHARMACEUTICALS INC.-2021-00623

PATIENT
  Age: 72 Year
  Sex: Female

DRUGS (12)
  1. TELMISARTAN AND AMLODIPINE TABLETS [Suspect]
     Active Substance: AMLODIPINE BESYLATE\TELMISARTAN
     Indication: PRODUCT USED FOR UNKNOWN INDICATION
     Dosage: 1 DOSAGE FORM, QD
     Route: 065
  2. 5?FU [FLUOROURACIL] [Suspect]
     Active Substance: FLUOROURACIL
     Indication: COLON CANCER
     Dosage: 400 MILLIGRAM/SQ. METER
     Route: 065
     Dates: start: 20190422
  3. OXALIPLATIN. [Concomitant]
     Active Substance: OXALIPLATIN
     Dosage: 165 MILLIGRAM TWO HOURS
     Route: 042
     Dates: start: 20190919
  4. 5?FU [FLUOROURACIL] [Suspect]
     Active Substance: FLUOROURACIL
     Dosage: 2400 MILLIGRAM/SQ. METER DIFFUSER
     Route: 065
     Dates: start: 2019
  5. PANITUMUMAB [Concomitant]
     Active Substance: PANITUMUMAB
     Indication: COLON CANCER
     Dosage: 6 MILLIGRAM/KILOGRAM
     Route: 065
     Dates: start: 20190905
  6. TAHOR [Concomitant]
     Active Substance: ATORVASTATIN CALCIUM
     Indication: PRODUCT USED FOR UNKNOWN INDICATION
     Dosage: 10 MILLIGRAM, QD IN THE EVENING
     Route: 065
  7. 5?FU [FLUOROURACIL] [Suspect]
     Active Substance: FLUOROURACIL
     Dosage: 775 MILLIGRAM
     Route: 065
     Dates: start: 20190919
  8. OXALIPLATIN. [Concomitant]
     Active Substance: OXALIPLATIN
     Indication: COLON CANCER
     Dosage: 85 MILLIGRAM/SQ. METER
     Route: 065
     Dates: start: 20190822
  9. PANITUMUMAB [Concomitant]
     Active Substance: PANITUMUMAB
     Dosage: 540 MILLIGRAM
     Route: 065
     Dates: start: 2019
  10. MAG 2 [MAGNESIUM CARBONATE] [Concomitant]
     Active Substance: MAGNESIUM CARBONATE
     Indication: PRODUCT USED FOR UNKNOWN INDICATION
     Dosage: 2 DOSAGE FORM MORNING AND EVENING
     Route: 048
     Dates: start: 20190917
  11. LEVOTHYROXINE. [Suspect]
     Active Substance: LEVOTHYROXINE
     Indication: PRODUCT USED FOR UNKNOWN INDICATION
     Dosage: 87.7 MICROGRAM, QD IN THE MORNING
     Route: 065
  12. TENORETIC [Suspect]
     Active Substance: ATENOLOL\CHLORTHALIDONE
     Indication: PRODUCT USED FOR UNKNOWN INDICATION
     Dosage: 1 DOSAGE FORM, QD IN THE MORNING
     Route: 065

REACTIONS (6)
  - Hypocalcaemia [Recovered/Resolved]
  - Condition aggravated [Recovered/Resolved]
  - Hypomagnesaemia [Recovered/Resolved]
  - Acute respiratory distress syndrome [Recovered/Resolved]
  - Hypokalaemia [Recovered/Resolved]
  - Respiratory arrest [Recovered/Resolved]

NARRATIVE: CASE EVENT DATE: 2019
